FAERS Safety Report 4478681-6 (Version None)
Quarter: 2004Q4

REPORT INFORMATION
  Report Type: 
  Country: None (occurrence: None)
  Receive Date: 20041019
  Receipt Date: 20041011
  Transmission Date: 20050328
  Serious: Yes (Hospitalization, Other)
  Sender: FDA-Public Use
  Company Number: US-AMGEN-US095019

PATIENT
  Age: 79 Year
  Sex: Female

DRUGS (1)
  1. EPOGEN [Suspect]
     Indication: RENAL FAILURE CHRONIC
     Dates: start: 20040722, end: 20040929

REACTIONS (4)
  - CEREBROVASCULAR ACCIDENT [None]
  - HAEMATOCRIT INCREASED [None]
  - HYPERTENSIVE CRISIS [None]
  - MOTOR DYSFUNCTION [None]
